FAERS Safety Report 7812965-6 (Version None)
Quarter: 2011Q4

REPORT INFORMATION
  Report Type: 
  Country: None (occurrence: None)
  Receive Date: 20111013
  Receipt Date: 20111010
  Transmission Date: 20120403
  Serious: Yes (Other)
  Sender: FDA-Public Use
  Company Number: GB-ABBOTT-11P-167-0863007-00

PATIENT
  Age: 68 Year
  Sex: Female

DRUGS (1)
  1. HUMIRA [Suspect]
     Indication: PRODUCT USED FOR UNKNOWN INDICATION
     Dosage: LOADING DOSE, 1 DOSE RECEIVED
     Dates: start: 20110810, end: 20110810

REACTIONS (4)
  - PYREXIA [None]
  - URTICARIA [None]
  - INJECTION SITE URTICARIA [None]
  - INJECTION SITE PAIN [None]
